FAERS Safety Report 12723021 (Version 2)
Quarter: 2016Q3

REPORT INFORMATION
  Report Type: Report from Study
  Country: US (occurrence: US)
  Receive Date: 20160908
  Receipt Date: 20160930
  Transmission Date: 20161109
  Serious: Yes (Hospitalization, Other)
  Sender: FDA-Public Use
  Company Number: US-AMGEN-USASL2016116103

PATIENT
  Age: 78 Year
  Sex: Female
  Weight: 57.14 kg

DRUGS (1)
  1. PROLIA [Suspect]
     Active Substance: DENOSUMAB
     Indication: OSTEOPOROSIS POSTMENOPAUSAL
     Dosage: 60 MG/ML, Q6MO
     Route: 058
     Dates: start: 20160318

REACTIONS (7)
  - Anaemia [Unknown]
  - Staphylococcal infection [Recovering/Resolving]
  - Road traffic accident [Unknown]
  - Ileostomy [Recovering/Resolving]
  - Nausea [Unknown]
  - Renal failure [Unknown]
  - Subcutaneous abscess [Recovering/Resolving]

NARRATIVE: CASE EVENT DATE: 20160514
